FAERS Safety Report 8123460-1 (Version None)
Quarter: 2012Q1

REPORT INFORMATION
  Report Type: 
  Country: None (occurrence: None)
  Receive Date: 20120208
  Receipt Date: 20120130
  Transmission Date: 20120608
  Serious: Yes (Hospitalization)
  Sender: FDA-Public Use
  Company Number: PHHY2012DE008031

PATIENT
  Age: 3 Year
  Sex: Male

DRUGS (1)
  1. METHERGINE [Suspect]
     Dosage: 1 DF, ONCE
     Dates: start: 20080121, end: 20080121

REACTIONS (1)
  - ACCIDENTAL EXPOSURE [None]
